FAERS Safety Report 8110922-6 (Version None)
Quarter: 2012Q1

REPORT INFORMATION
  Report Type: 
  Country: None (occurrence: None)
  Receive Date: 20120203
  Receipt Date: 20110118
  Transmission Date: 20120608
  Serious: No
  Sender: FDA-Public Use
  Company Number: US-GLAXOSMITHKLINE-A0611158A

PATIENT
  Age: 7 Year
  Sex: Male

DRUGS (3)
  1. LAMICTAL [Suspect]
     Indication: CONVULSION
     Dosage: 100MG TWICE PER DAY
     Route: 048
     Dates: start: 20040101
  2. LAMICTAL [Suspect]
     Dosage: 125MG IN THE MORNING
     Route: 048
     Dates: start: 20110118
  3. ANTIFUNGAL [Concomitant]

REACTIONS (5)
  - DAYDREAMING [None]
  - ATTENTION DEFICIT/HYPERACTIVITY DISORDER [None]
  - LEARNING DISABILITY [None]
  - LYMPHADENOPATHY [None]
  - COORDINATION ABNORMAL [None]
